FAERS Safety Report 5814103-8 (Version None)
Quarter: 2008Q3

REPORT INFORMATION
  Report Type: 
  Country: None (occurrence: None)
  Receive Date: 20080717
  Receipt Date: 20080707
  Transmission Date: 20090109
  Serious: Yes (Other)
  Sender: FDA-Public Use
  Company Number: FR-PFIZER INC-2008056609

PATIENT
  Sex: Female

DRUGS (1)
  1. AROMASIN [Suspect]

REACTIONS (1)
  - NERVE COMPRESSION [None]
